FAERS Safety Report 9786600 (Version 3)
Quarter: 2014Q1

REPORT INFORMATION
  Report Type: Spontaneous
  Country: IT (occurrence: IT)
  Receive Date: 20131227
  Receipt Date: 20140127
  Transmission Date: 20141002
  Serious: Yes (Hospitalization)
  Sender: FDA-Public Use
  Company Number: PHHY2013IT150523

PATIENT
  Age: 50 Year
  Sex: Male

DRUGS (2)
  1. AMOXICILLIN-CLAVULANIC ACID [Suspect]
     Indication: TOOTH INFECTION
     Dosage: 1 DF, QD
     Route: 048
     Dates: start: 20131112, end: 20131112
  2. OKI [Suspect]
     Indication: PAIN
     Dosage: 80 MG, QD
     Route: 048
     Dates: start: 20131112, end: 20131112

REACTIONS (4)
  - Dyspnoea [Recovered/Resolved]
  - Swelling face [Recovered/Resolved]
  - Swollen tongue [Recovered/Resolved]
  - Erythema [Recovered/Resolved]
